FAERS Safety Report 6306010-1 (Version None)
Quarter: 2009Q3

REPORT INFORMATION
  Report Type: 
  Country: None (occurrence: None)
  Receive Date: 20090812
  Receipt Date: 20090622
  Transmission Date: 20100115
  Serious: Yes (Death, Other)
  Sender: FDA-Public Use
  Company Number: DE-BAYER-200924751GPV

PATIENT
  Age: 55 Year

DRUGS (6)
  1. ZEVALIN [Suspect]
     Indication: NON-HODGKIN'S LYMPHOMA
     Dosage: DAY -21
  2. ZEVALIN [Suspect]
     Dosage: DAY -14
  3. YTRACIS [Suspect]
     Indication: NON-HODGKIN'S LYMPHOMA
     Dosage: DAY -14
  4. FLUDARABINE PHOSPHATE [Suspect]
     Indication: STEM CELL TRANSPLANT
     Dosage: DAY -21
  5. INDIUM 111 [Suspect]
     Indication: STEM CELL TRANSPLANT
     Dosage: DAY -21
  6. CYCLOSPORINE [Concomitant]
     Indication: IMMUNOSUPPRESSION

REACTIONS (4)
  - GRAFT VERSUS HOST DISEASE [None]
  - PNEUMONIA [None]
  - PULMONARY SEPSIS [None]
  - THROMBOTIC THROMBOCYTOPENIC PURPURA [None]
